FAERS Safety Report 17501676 (Version 1)
Quarter: 2020Q1

REPORT INFORMATION
  Report Type: Spontaneous
  Country: US (occurrence: US)
  Receive Date: 20200224
  Receipt Date: 20200224
  Transmission Date: 20200409
  Serious: Yes (Disabling)
  Sender: FDA-Public Use
  Company Number: None

PATIENT
  Sex: Female
  Weight: 68.04 kg

DRUGS (3)
  1. IBUPROFEN. [Suspect]
     Active Substance: IBUPROFEN
  2. NAPROXEN. [Suspect]
     Active Substance: NAPROXEN
  3. VOLTAREN [Suspect]
     Active Substance: DICLOFENAC SODIUM

REACTIONS (3)
  - Arthralgia [None]
  - Peripheral swelling [None]
  - Muscular weakness [None]
